FAERS Safety Report 4269633-X (Version None)
Quarter: 2004Q1

REPORT INFORMATION
  Report Type: 
  Country: None (occurrence: None)
  Receive Date: 20040109
  Receipt Date: 20031230
  Transmission Date: 20041129
  Serious: Yes (Other)
  Sender: FDA-Public Use
  Company Number: 2004000039

PATIENT
  Sex: Female

DRUGS (1)
  1. NEURONTIN [Suspect]
     Indication: ILL-DEFINED DISORDER

REACTIONS (4)
  - HEADACHE [None]
  - NEOPLASM [None]
  - PHOTOPHOBIA [None]
  - TOOTH DISORDER [None]
